FAERS Safety Report 8191393-0 (Version None)
Quarter: 2012Q1

REPORT INFORMATION
  Report Type: 
  Country: None (occurrence: None)
  Receive Date: 20120307
  Receipt Date: 20110711
  Transmission Date: 20120608
  Serious: No
  Sender: FDA-Public Use
  Company Number: US-ASTRAZENECA-2010SE59784

PATIENT
  Age: 64 Year
  Sex: Female

DRUGS (3)
  1. NEPHROGEN [Concomitant]
  2. METHERGINE [Suspect]
     Indication: MIGRAINE
     Route: 065
     Dates: start: 20080901, end: 20100101
  3. ZOMIG [Suspect]
     Route: 048

REACTIONS (10)
  - ROAD TRAFFIC ACCIDENT [None]
  - MEMORY IMPAIRMENT [None]
  - VOMITING [None]
  - DRUG DOSE OMISSION [None]
  - MIGRAINE [None]
  - BALANCE DISORDER [None]
  - CONFUSIONAL STATE [None]
  - HALLUCINATION [None]
  - ABDOMINAL DISCOMFORT [None]
  - MALAISE [None]
